FAERS Safety Report 5912320-X (Version None)
Quarter: 2008Q4

REPORT INFORMATION
  Report Type: 
  Country: None (occurrence: None)
  Receive Date: 20081008
  Receipt Date: 20081002
  Transmission Date: 20090506
  Serious: Yes (Death)
  Sender: FDA-Public Use
  Company Number: NO-MERCK-0808NOR00004

PATIENT
  Age: 69 Year
  Sex: Male

DRUGS (5)
  1. ZETIA [Suspect]
     Indication: HYPERCHOLESTEROLAEMIA
     Route: 048
     Dates: start: 20071215, end: 20080603
  2. IRBESARTAN [Concomitant]
     Indication: HYPERTENSION
     Route: 048
     Dates: end: 20080603
  3. ESOMEPRAZOLE MAGNESIUM [Concomitant]
     Indication: DYSPEPSIA
     Route: 048
  4. ATORVASTATIN CALCIUM [Suspect]
     Indication: HYPERCHOLESTEROLAEMIA
     Route: 048
     Dates: start: 20000101, end: 20080603
  5. TURMERIC [Suspect]
     Indication: MUSCULOSKELETAL STIFFNESS
     Route: 048
     Dates: start: 20080101, end: 20080401

REACTIONS (8)
  - ACUTE HEPATIC FAILURE [None]
  - DEATH [None]
  - GASTROINTESTINAL PAIN [None]
  - HEPATIC NECROSIS [None]
  - HEPATORENAL SYNDROME [None]
  - HYPERBILIRUBINAEMIA [None]
  - JAUNDICE [None]
  - MULTI-ORGAN FAILURE [None]
